FAERS Safety Report 9093163 (Version 2)
Quarter: 2013Q2

REPORT INFORMATION
  Report Type: Spontaneous
  Country: FR (occurrence: FR)
  Receive Date: 20130201
  Receipt Date: 20130430
  Transmission Date: 20140414
  Serious: Yes (Hospitalization)
  Sender: FDA-Public Use
  Company Number: FR-ROCHE-1186294

PATIENT
  Sex: Female

DRUGS (5)
  1. XOLAIR [Suspect]
     Indication: ASTHMA
     Route: 058
     Dates: start: 2010
  2. FUROSEMIDE [Concomitant]
  3. METFORMIN [Concomitant]
     Route: 065
  4. VICTOZA [Concomitant]
  5. INNOVAIR [Concomitant]

REACTIONS (1)
  - Uveitis [Unknown]
